FAERS Safety Report 4376731-9 (Version None)
Quarter: 2004Q2

REPORT INFORMATION
  Report Type: 
  Country: None (occurrence: None)
  Receive Date: 20040609
  Receipt Date: 20040513
  Transmission Date: 20050107
  Serious: Yes (Hospitalization)
  Sender: FDA-Public Use
  Company Number: 2004213405US

PATIENT
  Age: 90 Year
  Sex: Female

DRUGS (2)
  1. BEXTRA [Suspect]
  2. ACETYLSALICYLIC ACID SRT [Suspect]

REACTIONS (1)
  - GASTROINTESTINAL HAEMORRHAGE [None]
